FAERS Safety Report 10420125 (Version 1)
Quarter: 2014Q3

REPORT INFORMATION
  Report Type: Report from Study
  Country: CO (occurrence: CO)
  Receive Date: 20140829
  Receipt Date: 20140829
  Transmission Date: 20150326
  Serious: Yes (Other)
  Sender: FDA-Public Use
  Company Number: CO-ABBVIE-14P-036-1278387-00

PATIENT
  Sex: Male
  Weight: 68 kg

DRUGS (1)
  1. HUMIRA [Suspect]
     Active Substance: ADALIMUMAB
     Indication: PSORIASIS
     Route: 058
     Dates: start: 20130815

REACTIONS (3)
  - Chest pain [Recovering/Resolving]
  - Chest discomfort [Recovering/Resolving]
  - Choking sensation [Recovering/Resolving]

NARRATIVE: CASE EVENT DATE: 1999
